FAERS Safety Report 7085379-7 (Version None)
Quarter: 2010Q4

REPORT INFORMATION
  Report Type: 
  Country: None (occurrence: None)
  Receive Date: 20101005
  Receipt Date: 20090908
  Transmission Date: 20110411
  Serious: Yes (Other)
  Sender: FDA-Public Use
  Company Number: HQWYE684710JUL06

PATIENT
  Sex: Male

DRUGS (2)
  1. RAPAMUNE [Suspect]
     Indication: HEART TRANSPLANT
     Dosage: 2 MG 1X PER 1 DAY, ORAL ; 1 MG 1X PER 1 DAY, ORAL
     Route: 048
     Dates: start: 20060101
  2. CYCLOSPORINE [Concomitant]

REACTIONS (8)
  - BLOOD CHOLESTEROL INCREASED [None]
  - BLOOD TRIGLYCERIDES INCREASED [None]
  - CONDITION AGGRAVATED [None]
  - COUGH [None]
  - DYSPNOEA [None]
  - IMMUNOSUPPRESSANT DRUG LEVEL [None]
  - IMMUNOSUPPRESSANT DRUG LEVEL INCREASED [None]
  - SKIN CANCER [None]
